FAERS Safety Report 12273842 (Version 1)
Quarter: 2016Q2

REPORT INFORMATION
  Report Type: Spontaneous
  Country: US (occurrence: US)
  Receive Date: 20160415
  Receipt Date: 20160415
  Transmission Date: 20160815
  Serious: No
  Sender: FDA-Public Use
  Company Number: US-ALLERGAN-1504415US

PATIENT
  Age: 59 Year
  Sex: Female

DRUGS (3)
  1. LATISSE [Suspect]
     Active Substance: BIMATOPROST
     Dosage: 2 GTT, QHS
     Dates: start: 201411, end: 201411
  2. LATISSE [Suspect]
     Active Substance: BIMATOPROST
     Dosage: UNK UNK, QD
     Route: 061
  3. LATISSE [Suspect]
     Active Substance: BIMATOPROST
     Indication: PRODUCT USED FOR UNKNOWN INDICATION
     Dosage: 2 GTT, QHS
     Route: 061
     Dates: start: 201412

REACTIONS (5)
  - Eyelid operation [Unknown]
  - Eyelid irritation [Recovered/Resolved]
  - Erythema [Unknown]
  - Erythema of eyelid [Recovered/Resolved]
  - Pruritus [Unknown]

NARRATIVE: CASE EVENT DATE: 201411
